FAERS Safety Report 15967501 (Version 1)
Quarter: 2019Q1

REPORT INFORMATION
  Report Type: Spontaneous
  Country: US (occurrence: US)
  Receive Date: 20190215
  Receipt Date: 20190215
  Transmission Date: 20190418
  Serious: Yes (Life-Threatening, Hospitalization)
  Sender: FDA-Public Use
  Company Number: None

PATIENT
  Age: 13 Month
  Sex: Female
  Weight: 8.1 kg

DRUGS (2)
  1. HYLANDS BABABY TINY COLD TABLETS [Suspect]
     Active Substance: HOMEOPATHICS
  2. HYLANDS BABY TINY COLD TABLETS [Concomitant]
     Active Substance: HOMEOPATHICS
     Indication: NASOPHARYNGITIS
     Dosage: ?          QUANTITY:2 CAPSULE(S);?
     Route: 048
     Dates: start: 20190206, end: 20190211

REACTIONS (3)
  - Cyanosis [None]
  - Body temperature increased [None]
  - Seizure [None]

NARRATIVE: CASE EVENT DATE: 20190211
